FAERS Safety Report 6617280-4 (Version None)
Quarter: 2010Q1

REPORT INFORMATION
  Report Type: 
  Country: None (occurrence: None)
  Receive Date: 20100307
  Receipt Date: 20100107
  Transmission Date: 20100710
  Serious: No
  Sender: FDA-Public Use
  Company Number: US-BAYER-200917934NA

PATIENT
  Age: 31 Year
  Sex: Male
  Weight: 78 kg

DRUGS (26)
  1. MAGNEVIST [Suspect]
     Indication: NUCLEAR MAGNETIC RESONANCE IMAGING BRAIN
  2. OMNISCAN [Suspect]
     Indication: NUCLEAR MAGNETIC RESONANCE IMAGING BRAIN
     Dosage: AS USED: 20 ML
     Dates: start: 20040915, end: 20040915
  3. OMNISCAN [Suspect]
     Dates: start: 20041202, end: 20041202
  4. OMNISCAN [Suspect]
     Dates: start: 20060321, end: 20060321
  5. OMNISCAN [Suspect]
     Dates: start: 20061205, end: 20061205
  6. OMNISCAN [Suspect]
     Dates: start: 20060824, end: 20060824
  7. OMNISCAN [Suspect]
     Dates: start: 20050725, end: 20050725
  8. OPTIMARK [Suspect]
     Indication: NUCLEAR MAGNETIC RESONANCE IMAGING BRAIN
  9. MULTIHANCE [Suspect]
     Indication: NUCLEAR MAGNETIC RESONANCE IMAGING BRAIN
  10. PROHANCE [Suspect]
     Indication: NUCLEAR MAGNETIC RESONANCE IMAGING BRAIN
     Dates: start: 20080425, end: 20080425
  11. CALCITRIOL [Concomitant]
  12. PHOSLO [Concomitant]
  13. ALTACE [Concomitant]
  14. ZOLOFT [Concomitant]
  15. PEPCID [Concomitant]
  16. GABAPENTIN [Concomitant]
  17. RENOGEL [Concomitant]
  18. FENTANYL [Concomitant]
  19. CARBODOPA [Concomitant]
  20. PLAQUENIL [Concomitant]
  21. PREDNISONE [Concomitant]
  22. SENSIPAR [Concomitant]
  23. MS CONTIN [Concomitant]
  24. OXYCODONE HCL [Concomitant]
  25. HEPARIN [Concomitant]
  26. MEGESTROL [Concomitant]

REACTIONS (28)
  - ANHEDONIA [None]
  - ANXIETY [None]
  - ARTHRALGIA [None]
  - CYST [None]
  - DEPRESSION [None]
  - DRY SKIN [None]
  - DYSKINESIA [None]
  - EMOTIONAL DISTRESS [None]
  - FATIGUE [None]
  - HYPOAESTHESIA [None]
  - INSOMNIA [None]
  - JOINT RANGE OF MOTION DECREASED [None]
  - JOINT STIFFNESS [None]
  - JOINT SWELLING [None]
  - MASS [None]
  - MUSCULAR WEAKNESS [None]
  - MUSCULOSKELETAL STIFFNESS [None]
  - MYALGIA [None]
  - NEPHROGENIC SYSTEMIC FIBROSIS [None]
  - OEDEMA PERIPHERAL [None]
  - PRURITUS [None]
  - RENAL CYST [None]
  - SKIN DISCOLOURATION [None]
  - SKIN FIBROSIS [None]
  - SKIN HYPERTROPHY [None]
  - SKIN PLAQUE [None]
  - SKIN TIGHTNESS [None]
  - WEIGHT DECREASED [None]
